FAERS Safety Report 5706655-3 (Version None)
Quarter: 2008Q2

REPORT INFORMATION
  Report Type: 
  Country: None (occurrence: None)
  Receive Date: 20080416
  Receipt Date: 20080410
  Transmission Date: 20081010
  Serious: Yes (Hospitalization)
  Sender: FDA-Public Use
  Company Number: JP-RANBAXY-2008RR-14327

PATIENT

DRUGS (10)
  1. ISOTRETINOIN [Suspect]
     Indication: NEUROBLASTOMA
     Dosage: 130 MG/M2, QD
  2. ISOTRETINOIN [Suspect]
     Dosage: UNK
  3. FLUCONAZOLE [Concomitant]
     Indication: PNEUMONIA FUNGAL
     Dosage: 90 MG, QD
     Route: 042
  4. FLUCONAZOLE [Concomitant]
     Dosage: 100 MG, QD
     Route: 048
  5. VINCRISTINE [Concomitant]
  6. CYCLOPHOSPHAMIDE [Concomitant]
  7. DOXORUBICIN HCL [Concomitant]
     Indication: CHEMOTHERAPY
  8. CISPLATIN [Concomitant]
     Indication: CHEMOTHERAPY
  9. ETOPOSIDE [Concomitant]
     Indication: CHEMOTHERAPY
  10. MELPHALAN [Concomitant]
     Indication: CHEMOTHERAPY

REACTIONS (1)
  - HYPERCALCAEMIA [None]
